FAERS Safety Report 16876492 (Version 1)
Quarter: 2019Q4

REPORT INFORMATION
  Report Type: Spontaneous
  Country: CA (occurrence: CA)
  Receive Date: 20191002
  Receipt Date: 20191002
  Transmission Date: 20200122
  Serious: Yes (Hospitalization, Other)
  Sender: FDA-Public Use
  Company Number: CA-AMGEN-CANSP2019160991

PATIENT
  Sex: Female

DRUGS (4)
  1. RITUXAN [Suspect]
     Active Substance: RITUXIMAB
     Indication: PRODUCT USED FOR UNKNOWN INDICATION
     Dosage: UNK
     Route: 065
  2. PREDNISONE. [Suspect]
     Active Substance: PREDNISONE
     Indication: PRODUCT USED FOR UNKNOWN INDICATION
     Dosage: 5 MILLIGRAM, BID
     Route: 065
  3. ENBREL [Suspect]
     Active Substance: ETANERCEPT
     Indication: PRODUCT USED FOR UNKNOWN INDICATION
     Dosage: UNK
     Route: 065
  4. METHOTREXATE. [Concomitant]
     Active Substance: METHOTREXATE
     Dosage: UNK

REACTIONS (9)
  - Injection site urticaria [Recovering/Resolving]
  - Pulmonary toxicity [Recovered/Resolved]
  - Alopecia [Unknown]
  - Quality of life decreased [Not Recovered/Not Resolved]
  - Injection site erythema [Recovering/Resolving]
  - Oesophageal carcinoma [Recovered/Resolved]
  - Lower respiratory tract infection [Recovered/Resolved]
  - Barrett^s oesophagus [Unknown]
  - Gait disturbance [Not Recovered/Not Resolved]
